FAERS Safety Report 8414457-2 (Version None)
Quarter: 2012Q2

REPORT INFORMATION
  Report Type: 
  Country: None (occurrence: None)
  Receive Date: 20120605
  Receipt Date: 20120522
  Transmission Date: 20120825
  Serious: Yes (Death, Hospitalization, Other)
  Sender: FDA-Public Use
  Company Number: US-MYLANLABS-2009AC000380

PATIENT
  Age: 93 Year
  Sex: Female
  Weight: 55.34 kg

DRUGS (33)
  1. LEVOTHROID [Concomitant]
  2. NEOMYCIN AND POLYMYXIN B SULFATES AND DEXAMET [Concomitant]
  3. FOLIC ACID [Concomitant]
  4. LEVAQUIN [Concomitant]
  5. CARDIZEM [Concomitant]
  6. SYNTHROID [Concomitant]
  7. VICODIN [Concomitant]
  8. ACTONEL [Concomitant]
  9. HYDROCODONE BITARTRATE AND ACETAMINOPHEN [Concomitant]
  10. ASPIRIN [Concomitant]
  11. ISOSORBIDE MONONITRATE [Concomitant]
  12. POTASSIUM CHLORIDE [Concomitant]
  13. DIGOXIN [Suspect]
     Route: 048
     Dates: start: 19771127, end: 20080123
  14. LEVOTHYROXINE SODIUM [Concomitant]
  15. FERROUS SULFATE TAB [Concomitant]
  16. ASPIRIN [Concomitant]
  17. ISORDIL [Concomitant]
  18. METHOTREXATE [Concomitant]
  19. GLYCOLAX [Concomitant]
  20. NITROGLYCERIN [Concomitant]
  21. MUCINE [Concomitant]
  22. COLACE [Concomitant]
  23. NITROGLYCERIN [Concomitant]
  24. FOLIC ACID [Concomitant]
  25. LEVOXYL [Concomitant]
  26. FUROSEMIDE [Concomitant]
  27. LASIX [Concomitant]
  28. ZINC SULFATE [Concomitant]
  29. METHOTREXATE [Concomitant]
  30. PREDNISONE [Concomitant]
  31. CHELATED ZINC /00156501/ [Concomitant]
  32. LISINOPRIL [Concomitant]
  33. MAXITROL [Concomitant]

REACTIONS (67)
  - DEHYDRATION [None]
  - PANCREATITIS [None]
  - ASTHENIA [None]
  - PNEUMONIA [None]
  - DECUBITUS ULCER [None]
  - FLATULENCE [None]
  - GASTRIC ULCER [None]
  - GASTRITIS [None]
  - FUNCTIONAL GASTROINTESTINAL DISORDER [None]
  - PERIARTHRITIS [None]
  - POLYMYALGIA RHEUMATICA [None]
  - DEATH [None]
  - BLOOD CREATININE INCREASED [None]
  - HEPATIC CYST [None]
  - OCCIPITAL NEURALGIA [None]
  - OXYGEN SUPPLEMENTATION [None]
  - PAIN [None]
  - TOXICITY TO VARIOUS AGENTS [None]
  - DIARRHOEA [None]
  - ABDOMINAL PAIN [None]
  - BRONCHOSPASM [None]
  - ABDOMINAL TENDERNESS [None]
  - CACHEXIA [None]
  - CARPAL TUNNEL SYNDROME [None]
  - CHRONIC OBSTRUCTIVE PULMONARY DISEASE [None]
  - FIBROCYSTIC BREAST DISEASE [None]
  - HIATUS HERNIA [None]
  - LABORATORY TEST ABNORMAL [None]
  - OSTEOARTHRITIS [None]
  - ATELECTASIS [None]
  - SINUS ARRHYTHMIA [None]
  - CARDIOMEGALY [None]
  - GASTROOESOPHAGEAL REFLUX DISEASE [None]
  - MALAISE [None]
  - MUSCLE SPASMS [None]
  - OEDEMA PERIPHERAL [None]
  - WEIGHT DECREASED [None]
  - WHEEZING [None]
  - X-RAY ABNORMAL [None]
  - COMPUTERISED TOMOGRAM ABNORMAL [None]
  - INFLUENZA [None]
  - JOINT EFFUSION [None]
  - LARYNGITIS [None]
  - UPPER-AIRWAY COUGH SYNDROME [None]
  - ATRIAL FIBRILLATION [None]
  - BLOOD UREA INCREASED [None]
  - ANGINA PECTORIS [None]
  - HYPOXIA [None]
  - CARDIAC MURMUR [None]
  - CHEST PAIN [None]
  - EAR INFECTION [None]
  - ERUCTATION [None]
  - HYPOTHYROIDISM [None]
  - JOINT STIFFNESS [None]
  - MYALGIA [None]
  - PARAESTHESIA [None]
  - OROPHARYNGEAL PAIN [None]
  - URINARY TRACT INFECTION [None]
  - VOMITING [None]
  - DYSPNOEA [None]
  - CARDIAC FAILURE CONGESTIVE [None]
  - DECREASED APPETITE [None]
  - AORTIC STENOSIS [None]
  - NAUSEA [None]
  - COUGH [None]
  - ECHOCARDIOGRAM ABNORMAL [None]
  - JOINT CREPITATION [None]
